FAERS Safety Report 5904475-8 (Version None)
Quarter: 2008Q3

REPORT INFORMATION
  Report Type: 
  Country: None (occurrence: None)
  Receive Date: 20080930
  Receipt Date: 20080930
  Transmission Date: 20090109
  Serious: No
  Sender: FDA-Public Use
  Company Number: None

PATIENT
  Age: 62 Year
  Sex: Male

DRUGS (1)
  1. DEHYDROEPIANDROSTERONE [Suspect]
     Dosage: 1 TAB PO
     Route: 048
     Dates: end: 20080818

REACTIONS (1)
  - PROSTATIC SPECIFIC ANTIGEN INCREASED [None]
